FAERS Safety Report 6757585-X (Version None)
Quarter: 2010Q2

REPORT INFORMATION
  Report Type: 
  Country: None (occurrence: None)
  Receive Date: 20100607
  Receipt Date: 20100601
  Transmission Date: 20101027
  Serious: Yes (Death, Hospitalization)
  Sender: FDA-Public Use
  Company Number: JP-BAYER-201012384BYL

PATIENT
  Age: 81 Year
  Sex: Male
  Weight: 46 kg

DRUGS (15)
  1. SORAFENIB [Suspect]
     Indication: LUNG ADENOCARCINOMA
     Dosage: TOTAL DAILY DOSE: 800 MG  UNIT DOSE: 200 MG
     Route: 048
     Dates: start: 20100223, end: 20100515
  2. P GUARD [Concomitant]
     Indication: CANCER PAIN
     Route: 048
     Dates: start: 20100316
  3. PANTOSIN [Concomitant]
     Indication: CONSTIPATION
     Route: 048
     Dates: start: 20020101
  4. MAGMITT [Concomitant]
     Route: 048
  5. OXINORM [Concomitant]
     Indication: CANCER PAIN
     Route: 048
     Dates: start: 20100223
  6. NAPROXEN [Concomitant]
     Indication: CANCER PAIN
     Dosage: TOTAL DAILY DOSE: 300 MG
     Route: 048
     Dates: start: 20100212
  7. GAMOFA D [Concomitant]
     Route: 048
  8. PURSENNID [Concomitant]
     Indication: CONSTIPATION
     Dosage: 12-24 MG A DAY
     Route: 048
     Dates: start: 20100223
  9. POTACOL-R [Concomitant]
     Indication: DECREASED APPETITE
     Route: 041
     Dates: start: 20100419, end: 20100420
  10. POTACOL-R [Concomitant]
     Route: 041
     Dates: start: 20100420
  11. CANDESARTAN CILEXETIL [Concomitant]
     Indication: HYPERTENSION
     Route: 048
     Dates: start: 20080101
  12. ACINON [Concomitant]
     Indication: REFLUX OESOPHAGITIS
     Route: 048
     Dates: start: 20020101
  13. MAGNESIUM OXIDE [Concomitant]
     Indication: CONSTIPATION
     Route: 048
     Dates: start: 20100316
  14. ABOVIS [Concomitant]
     Indication: GASTRITIS
     Route: 048
     Dates: start: 20020101
  15. PREDONINE [Concomitant]
     Indication: DECREASED APPETITE
     Route: 048
     Dates: start: 20100406

REACTIONS (3)
  - ATRIAL FIBRILLATION [None]
  - METABOLIC ACIDOSIS [None]
  - PNEUMONIA [None]
